FAERS Safety Report 9218992 (Version 4)
Quarter: 2013Q2

REPORT INFORMATION
  Report Type: Spontaneous
  Country: MX (occurrence: MX)
  Receive Date: 20130409
  Receipt Date: 20130425
  Transmission Date: 20140414
  Serious: Yes (Other)
  Sender: FDA-Public Use
  Company Number: MX-PFIZER INC-2013111545

PATIENT
  Age: 43 Year
  Sex: Male

DRUGS (6)
  1. PRISTIQ [Suspect]
     Dosage: UNK
     Dates: start: 20120608
  2. BUSCAPINA [Concomitant]
     Dosage: UNK
  3. AZITROCIN [Concomitant]
     Dosage: UNK
     Dates: start: 201302
  4. TAMIFLU [Concomitant]
     Indication: INFLUENZA
     Dosage: UNK
     Dates: start: 2011
  5. PANCLASA [Concomitant]
     Dosage: UNK
  6. RIVOTRIL [Concomitant]
     Dosage: UNK

REACTIONS (2)
  - Blindness [Recovered/Resolved]
  - Cataract [Recovered/Resolved]
